FAERS Safety Report 8159132-7 (Version None)
Quarter: 2012Q1

REPORT INFORMATION
  Report Type: 
  Country: None (occurrence: None)
  Receive Date: 20120223
  Receipt Date: 20120209
  Transmission Date: 20120608
  Serious: Yes (Hospitalization)
  Sender: FDA-Public Use
  Company Number: DE-AMGEN-DEUCT2012010317

PATIENT
  Age: 76 Year
  Sex: Female

DRUGS (14)
  1. ETANERCEPT [Suspect]
     Indication: RHEUMATOID ARTHRITIS
     Dosage: 50 MG, QWK
     Dates: start: 20110722, end: 20111001
  2. PREDNISONE [Concomitant]
     Dosage: UNK
     Dates: start: 20100601
  3. LANTUS [Concomitant]
     Dosage: 10 IU, 1X/DAY
  4. RAMIPRIL [Concomitant]
     Dosage: 10 MG, 2X/DAY
  5. FERROUS SULFATE TAB [Concomitant]
     Indication: IRON DEFICIENCY
     Dosage: 1 DF, 1X/DAY
  6. XGEVA [Concomitant]
     Dosage: 60 MG, EVERY 6 MONTHS
     Route: 058
     Dates: start: 20110201
  7. CALCITRIOL [Concomitant]
     Dosage: 0.25 UG, 2X/DAY
  8. CALCIMAGON-D3 [Concomitant]
     Dosage: 1 DF, 1X/DAY
  9. METAMIZOLE [Concomitant]
     Dosage: UNK
  10. PREDNISOLONE [Concomitant]
     Dosage: 5 MG, 1X/DAY
  11. METOPROLOL [Concomitant]
     Dosage: 47.5 MG, 2X/DAY
  12. METFORMIN HCL [Concomitant]
     Dosage: 1000 MG, 2X/DAY
  13. FUROSEMID                          /00032601/ [Concomitant]
     Dosage: 40 MG, 1X/DAY
  14. PANTOPRAZOLE [Concomitant]
     Dosage: 20 MG, UNK

REACTIONS (1)
  - HYPOCHROMIC ANAEMIA [None]
